FAERS Safety Report 9276709 (Version 2)
Quarter: 2013Q2

REPORT INFORMATION
  Report Type: Spontaneous
  Country: US (occurrence: None)
  Receive Date: 20130501
  Receipt Date: 20130501
  Transmission Date: 20140414
  Serious: Yes (Hospitalization)
  Sender: FDA-Public Use
  Company Number: 147717

PATIENT
  Age: 56 Year
  Sex: Male
  Weight: 92 kg

DRUGS (1)
  1. LEUCOVORIN CALCIUM FOR INJ. 50MG - BEDFORD LABS, INC. [Suspect]
     Indication: COLORECTAL CANCER METASTATIC
     Dates: start: 20130118, end: 20130315

REACTIONS (6)
  - Fatigue [None]
  - Diarrhoea [None]
  - Leukocytosis [None]
  - Klebsiella sepsis [None]
  - Tachycardia [None]
  - Neutrophil count decreased [None]
